FAERS Safety Report 8606819 (Version 4)
Quarter: 2014Q2

REPORT INFORMATION
  Report Type: Spontaneous
  Country: US (occurrence: US)
  Receive Date: 20120611
  Receipt Date: 20140401
  Transmission Date: 20141212
  Serious: No
  Sender: FDA-Public Use
  Company Number: US-ASTRAZENECA-2012SE35189

PATIENT
  Age: 68 Year
  Sex: Female

DRUGS (21)
  1. NEXIUM [Suspect]
     Indication: GASTRITIS
     Route: 048
     Dates: start: 2007
  2. NEXIUM [Suspect]
     Indication: GASTROOESOPHAGEAL REFLUX DISEASE
     Route: 048
     Dates: start: 2007
  3. NEXIUM [Suspect]
     Indication: ABDOMINAL DISCOMFORT
     Route: 048
     Dates: start: 2007
  4. NEXIUM [Suspect]
     Indication: GASTRITIS
     Route: 048
     Dates: start: 201009
  5. NEXIUM [Suspect]
     Indication: GASTROOESOPHAGEAL REFLUX DISEASE
     Route: 048
     Dates: start: 201009
  6. NEXIUM [Suspect]
     Indication: ABDOMINAL DISCOMFORT
     Route: 048
     Dates: start: 201009
  7. NEXIUM [Suspect]
     Indication: GASTRITIS
     Route: 048
     Dates: start: 20101029
  8. NEXIUM [Suspect]
     Indication: GASTROOESOPHAGEAL REFLUX DISEASE
     Route: 048
     Dates: start: 20101029
  9. NEXIUM [Suspect]
     Indication: ABDOMINAL DISCOMFORT
     Route: 048
     Dates: start: 20101029
  10. NEXIUM [Suspect]
     Indication: GASTRITIS
     Route: 048
     Dates: start: 20080506
  11. NEXIUM [Suspect]
     Indication: GASTROOESOPHAGEAL REFLUX DISEASE
     Route: 048
     Dates: start: 20080506
  12. NEXIUM [Suspect]
     Indication: ABDOMINAL DISCOMFORT
     Route: 048
     Dates: start: 20080506
  13. PREVACID [Concomitant]
     Dosage: ONCE A DAY
  14. LISINOPRIL [Concomitant]
     Indication: HYPERTENSION
  15. ATENOLOL [Concomitant]
     Indication: HYPERTENSION
  16. HYDROCHLOROTHIAZIDE [Concomitant]
     Indication: HYPERTENSION
  17. NORTRIPTYLINE [Concomitant]
     Indication: BACK PAIN
  18. MULTIPLE VITAMINS [Concomitant]
  19. SULFAMETHOXAZOLE [Concomitant]
     Dates: start: 20101021
  20. OMEPRAZOLE [Concomitant]
     Dates: start: 20080703
  21. PREDNISONE [Concomitant]
     Dates: start: 20080930

REACTIONS (7)
  - Osteoporosis [Unknown]
  - Multiple fractures [Unknown]
  - Scoliosis [Unknown]
  - Intervertebral disc degeneration [Unknown]
  - Intervertebral disc protrusion [Unknown]
  - Arthritis [Unknown]
  - Vitamin D deficiency [Unknown]
